FAERS Safety Report 4936761-2 (Version None)
Quarter: 2006Q1

REPORT INFORMATION
  Report Type: 
  Country: None (occurrence: None)
  Receive Date: 20060307
  Receipt Date: 20051214
  Transmission Date: 20060701
  Serious: Yes (Hospitalization)
  Sender: FDA-Public Use
  Company Number: JP-MERCK-0512USA02514

PATIENT
  Age: 59 Year
  Sex: Female

DRUGS (13)
  1. MAXALT [Suspect]
     Indication: MIGRAINE
     Route: 048
     Dates: start: 20051024, end: 20051101
  2. ATELEC [Concomitant]
     Route: 048
     Dates: start: 20050901
  3. BLOPRESS [Concomitant]
     Route: 048
     Dates: start: 20050829
  4. LOMERIZINE HYDROCHLORIDE [Concomitant]
     Route: 048
     Dates: start: 20050907
  5. CARDENALIN [Concomitant]
     Route: 048
     Dates: start: 20050907
  6. TORSEMIDE [Concomitant]
     Route: 048
     Dates: start: 20050917
  7. BASEN [Concomitant]
     Route: 048
     Dates: start: 20050914
  8. PURSENNID [Concomitant]
     Route: 048
     Dates: start: 20051003
  9. MUCOSOLVAN [Concomitant]
     Route: 048
     Dates: start: 20050906
  10. CEPHADOL [Concomitant]
     Route: 048
     Dates: start: 20050830
  11. MERISLON [Concomitant]
     Route: 048
     Dates: start: 20050830
  12. CYANOCOBALAMIN [Concomitant]
     Route: 048
     Dates: start: 20050905
  13. KALLIDINOGENASE [Concomitant]
     Route: 048
     Dates: start: 20050905

REACTIONS (3)
  - DIZZINESS [None]
  - FRACTURED COCCYX [None]
  - SYNCOPE [None]
